FAERS Safety Report 7418620-9 (Version None)
Quarter: 2011Q1

REPORT INFORMATION
  Report Type: 
  Country: None (occurrence: None)
  Receive Date: 20110302
  Receipt Date: 20101022
  Transmission Date: 20110831
  Serious: No
  Sender: FDA-Public Use
  Company Number: 020303

PATIENT
  Sex: Female

DRUGS (5)
  1. METHOTREXATE [Concomitant]
  2. ACTONEL [Concomitant]
  3. CIMZIA [Suspect]
     Indication: CROHN'S DISEASE
     Dosage: 400 MG 1X/4 WEEKS SUBCUTANEOUS, SUBCUTANEOUS
     Route: 058
     Dates: start: 20101020
  4. CIMZIA [Suspect]
     Indication: CROHN'S DISEASE
     Dosage: 400 MG 1X/4 WEEKS SUBCUTANEOUS, SUBCUTANEOUS
     Route: 058
     Dates: start: 20100520, end: 20100101
  5. CIMZIA [Suspect]

REACTIONS (3)
  - ARTHRALGIA [None]
  - OSTEOPENIA [None]
  - JOINT SWELLING [None]
